FAERS Safety Report 10336200 (Version 1)
Quarter: 2014Q3

REPORT INFORMATION
  Report Type: Spontaneous
  Country: DK (occurrence: FR)
  Receive Date: 20140723
  Receipt Date: 20140723
  Transmission Date: 20150326
  Serious: Yes (Death, Hospitalization, Other)
  Sender: FDA-Public Use
  Company Number: FR-FRI-1000069174

PATIENT
  Age: 32 Year
  Sex: Male

DRUGS (10)
  1. THYROZOL [Suspect]
     Active Substance: METHIMAZOLE
     Dosage: OVERDOSE OF 400 MG
     Dates: start: 20140605
  2. NOCTAMIDE [Suspect]
     Active Substance: LORMETAZEPAM
     Dosage: OVERDOSE OF 12 MG
     Dates: start: 20140605
  3. NOCTAMIDE [Suspect]
     Active Substance: LORMETAZEPAM
     Route: 048
  4. ESCITALOPRAM [Suspect]
     Active Substance: ESCITALOPRAM OXALATE
     Indication: MAJOR DEPRESSION
     Route: 048
  5. ESCITALOPRAM [Suspect]
     Active Substance: ESCITALOPRAM OXALATE
     Dosage: OVERDOSE OF 560 MG
     Route: 048
     Dates: start: 20140605
  6. LOXEN [Suspect]
     Active Substance: NICARDIPINE HYDROCHLORIDE
     Route: 048
  7. VERAPAMIL [Suspect]
     Active Substance: VERAPAMIL HYDROCHLORIDE
     Route: 048
  8. THYROZOL [Suspect]
     Active Substance: METHIMAZOLE
     Route: 048
  9. VERAPAMIL [Suspect]
     Active Substance: VERAPAMIL HYDROCHLORIDE
     Dosage: OVERDOSE OF 1200 MG
     Route: 048
     Dates: start: 20140605
  10. LOXEN [Suspect]
     Active Substance: NICARDIPINE HYDROCHLORIDE
     Dosage: OVERDOSE OF 4800 MG
     Dates: start: 20140605

REACTIONS (3)
  - Overdose [Fatal]
  - Cardiogenic shock [Fatal]
  - Vasoplegia syndrome [Fatal]

NARRATIVE: CASE EVENT DATE: 20140605
